FAERS Safety Report 7653556-X (Version None)
Quarter: 2011Q3

REPORT INFORMATION
  Report Type: 
  Country: None (occurrence: None)
  Receive Date: 20110803
  Receipt Date: 20110729
  Transmission Date: 20111222
  Serious: Yes (Other)
  Sender: FDA-Public Use
  Company Number: GB-TEVA-294362ISR

PATIENT
  Age: 78 Year
  Sex: Male

DRUGS (2)
  1. AMOXICILLIN [Suspect]
     Indication: ENDOCARDITIS ENTEROCOCCAL
  2. GENTAMICIN [Suspect]
     Indication: ENDOCARDITIS ENTEROCOCCAL

REACTIONS (3)
  - INFLAMMATION [None]
  - URTICARIA [None]
  - TUBULOINTERSTITIAL NEPHRITIS [None]
